FAERS Safety Report 12560812 (Version 2)
Quarter: 2016Q4

REPORT INFORMATION
  Report Type: Spontaneous
  Country: US (occurrence: US)
  Receive Date: 20160715
  Receipt Date: 20161118
  Transmission Date: 20170207
  Serious: Yes (Hospitalization, Other)
  Sender: FDA-Public Use
  Company Number: US-PFIZER INC-2016345778

PATIENT
  Age: 36 Year
  Sex: Male

DRUGS (13)
  1. ANDRODERM [Suspect]
     Active Substance: TESTOSTERONE
     Dosage: UNK, 1X/DAY
     Dates: start: 2015
  2. ANDROID [Suspect]
     Active Substance: METHYLTESTOSTERONE
     Indication: HYPOGONADISM MALE
  3. TESTOSTERONE CYPIONATE. [Suspect]
     Active Substance: TESTOSTERONE CYPIONATE
     Indication: HORMONE REPLACEMENT THERAPY
     Dosage: UNK, EVERY 2 WEEKS
     Dates: start: 2002, end: 2003
  4. ANDRODERM [Suspect]
     Active Substance: TESTOSTERONE
     Dosage: UNK, 1X/DAY
     Dates: start: 2007
  5. ANDROGEL [Suspect]
     Active Substance: TESTOSTERONE
     Indication: HORMONE REPLACEMENT THERAPY
     Dosage: UNK
     Dates: start: 200203, end: 201408
  6. ANDRODERM [Suspect]
     Active Substance: TESTOSTERONE
     Indication: HYPOGONADISM MALE
     Dosage: UNK, 1X/DAY
     Dates: start: 2004, end: 2005
  7. TESTOSTERONE CYPIONATE. [Suspect]
     Active Substance: TESTOSTERONE CYPIONATE
     Indication: HYPOGONADISM MALE
  8. TESTIM [Suspect]
     Active Substance: TESTOSTERONE
     Indication: HORMONE REPLACEMENT THERAPY
     Dosage: UNK, 1X/DAY
     Dates: start: 2004, end: 2005
  9. DEPO-TESTOSTERONE [Suspect]
     Active Substance: TESTOSTERONE CYPIONATE
     Indication: HORMONE REPLACEMENT THERAPY
     Dosage: UNK
     Dates: start: 200203, end: 201408
  10. ANDROGEL [Suspect]
     Active Substance: TESTOSTERONE
     Indication: HYPOGONADISM MALE
     Dosage: UNK, 1X/DAY
     Dates: start: 2004, end: 2005
  11. ANDROGEL [Suspect]
     Active Substance: TESTOSTERONE
     Dosage: UNK, 1X/DAY
     Dates: start: 2006, end: 2015
  12. ANDRODERM [Suspect]
     Active Substance: TESTOSTERONE
     Indication: HORMONE REPLACEMENT THERAPY
     Dosage: UNK
     Dates: start: 200203, end: 201408
  13. ANDROID [Suspect]
     Active Substance: METHYLTESTOSTERONE
     Indication: HORMONE REPLACEMENT THERAPY
     Dosage: UNK, 1X/DAY
     Dates: start: 2007

REACTIONS (5)
  - Joint swelling [Unknown]
  - Impaired work ability [Unknown]
  - Deep vein thrombosis [Unknown]
  - Walking aid user [Unknown]
  - Post thrombotic syndrome [Not Recovered/Not Resolved]

NARRATIVE: CASE EVENT DATE: 2003
